FAERS Safety Report 7318702-6 (Version None)
Quarter: 2011Q1

REPORT INFORMATION
  Report Type: 
  Country: None (occurrence: None)
  Receive Date: 20110228
  Receipt Date: 20110216
  Transmission Date: 20110831
  Serious: No
  Sender: FDA-Public Use
  Company Number: JP-JNJFOC-20110206466

PATIENT
  Age: 10 Decade
  Sex: Male

DRUGS (2)
  1. MORPHINE HYDROCHLORIDE [Concomitant]
     Route: 065
  2. DUROTEP MT [Suspect]
     Indication: CANCER PAIN
     Route: 062

REACTIONS (1)
  - DRUG PRESCRIBING ERROR [None]
